FAERS Safety Report 15076503 (Version 2)
Quarter: 2018Q2

REPORT INFORMATION
  Report Type: Spontaneous
  Country: US (occurrence: US)
  Receive Date: 20180627
  Receipt Date: 20180629
  Transmission Date: 20180711
  Serious: Yes (Other)
  Sender: FDA-Public Use
  Company Number: US-LUNDBECK-DKLU2050598

PATIENT
  Age: 72 Year
  Sex: Male

DRUGS (2)
  1. NORTHERA [Suspect]
     Active Substance: DROXIDOPA
     Indication: ORTHOSTATIC HYPOTENSION
  2. NORTHERA [Suspect]
     Active Substance: DROXIDOPA
     Indication: PARKINSON^S DISEASE
     Dosage: SCHEDULE B (TITRATION COMPLETE)
     Route: 048
     Dates: start: 20180608

REACTIONS (3)
  - Seizure [Unknown]
  - Blood pressure increased [Unknown]
  - Retinal vascular occlusion [Unknown]

NARRATIVE: CASE EVENT DATE: 20180623
